FAERS Safety Report 25879716 (Version 1)
Quarter: 2025Q4

REPORT INFORMATION
  Report Type: Spontaneous
  Country: EU (occurrence: EU)
  Receive Date: 20251003
  Receipt Date: 20251003
  Transmission Date: 20260118
  Serious: Yes (Disabling, Other)
  Sender: SANDOZ
  Company Number: EU-SANDOZ-SDZ2025FR071240

PATIENT
  Sex: Female

DRUGS (2)
  1. ACLASTA [Suspect]
     Active Substance: ZOLEDRONIC ACID
     Indication: Product used for unknown indication
     Dosage: UNK 1STINFUSION
     Route: 065
     Dates: start: 2023
  2. ACLASTA [Suspect]
     Active Substance: ZOLEDRONIC ACID
     Dosage: UNK 2ND INFUSION
     Route: 065
     Dates: start: 2024

REACTIONS (18)
  - Disability [Unknown]
  - Arthralgia [Unknown]
  - Nausea [Unknown]
  - Dizziness [Unknown]
  - Myalgia [Unknown]
  - Decreased appetite [Unknown]
  - Somnolence [Unknown]
  - Eye irritation [Unknown]
  - Erythema [Unknown]
  - Cough [Unknown]
  - Abdominal pain [Unknown]
  - Pollakiuria [Unknown]
  - Thirst [Unknown]
  - Diarrhoea [Unknown]
  - Joint swelling [Unknown]
  - Arthralgia [Unknown]
  - Swelling face [Unknown]
  - Incorrect dose administered [Unknown]

NARRATIVE: CASE EVENT DATE: 20230101
